FAERS Safety Report 8598275-0 (Version None)
Quarter: 2012Q3

REPORT INFORMATION
  Report Type: 
  Country: None (occurrence: None)
  Receive Date: 20120806
  Receipt Date: 20120806
  Transmission Date: 20120928
  Serious: Yes (Other)
  Sender: FDA-Public Use
  Company Number: None

PATIENT

DRUGS (2)
  1. BUPIVACAINE HCL [Suspect]
     Indication: KNEE OPERATION
     Dosage: OTHER
     Route: 050
  2. VICADEN [Concomitant]

REACTIONS (8)
  - HYPOAESTHESIA [None]
  - ANGER [None]
  - BLOOD PRESSURE INCREASED [None]
  - PARAESTHESIA [None]
  - NIGHTMARE [None]
  - TREMOR [None]
  - URINARY INCONTINENCE [None]
  - BURNING SENSATION [None]
